FAERS Safety Report 6819610-7 (Version None)
Quarter: 2010Q3

REPORT INFORMATION
  Report Type: 
  Country: None (occurrence: None)
  Receive Date: 20100701
  Receipt Date: 20100205
  Transmission Date: 20110219
  Serious: No
  Sender: FDA-Public Use
  Company Number: US-TEVA-223296USA

PATIENT
  Sex: Male

DRUGS (1)
  1. AZILECT [Suspect]
     Indication: PARKINSON'S DISEASE
     Route: 048
     Dates: start: 20100101, end: 20100128

REACTIONS (4)
  - BLOOD URINE PRESENT [None]
  - HEADACHE [None]
  - MUSCULOSKELETAL STIFFNESS [None]
  - VISION BLURRED [None]
